FAERS Safety Report 7134510-3 (Version None)
Quarter: 2010Q4

REPORT INFORMATION
  Report Type: 
  Country: None (occurrence: None)
  Receive Date: 20101203
  Receipt Date: 20101122
  Transmission Date: 20110411
  Serious: Yes (Hospitalization)
  Sender: FDA-Public Use
  Company Number: TR-KINGPHARMUSA00001-K201001426

PATIENT
  Age: 27 Year
  Sex: Male

DRUGS (8)
  1. SEPTRA [Suspect]
     Indication: BRUCELLOSIS
     Dosage: 160/800 MG BID
     Route: 048
  2. SEPTRA [Suspect]
     Indication: ENDOCARDITIS
  3. VANCOMYCIN [Suspect]
     Indication: ENDOCARDITIS
  4. GENTAMICIN [Suspect]
     Indication: ENDOCARDITIS
     Dosage: UNK
  5. RIFAMPICIN [Suspect]
     Indication: BRUCELLOSIS
     Dosage: 600 MG, QD
     Route: 048
  6. RIFAMPICIN [Suspect]
     Indication: ENDOCARDITIS
  7. DOXYCYCLINE [Suspect]
     Indication: BRUCELLOSIS
     Dosage: 100 MG, BID
     Route: 048
  8. DOXYCYCLINE [Suspect]
     Indication: ENDOCARDITIS

REACTIONS (5)
  - ENDOCARDITIS CANDIDA [None]
  - HEART VALVE INCOMPETENCE [None]
  - LEFT VENTRICULAR FAILURE [None]
  - LEUKOCYTOSIS [None]
  - PYREXIA [None]
